FAERS Safety Report 7574145-1 (Version None)
Quarter: 2011Q2

REPORT INFORMATION
  Report Type: 
  Country: None (occurrence: None)
  Receive Date: 20110627
  Receipt Date: 20110614
  Transmission Date: 20111010
  Serious: Yes (Other)
  Sender: FDA-Public Use
  Company Number: US-SHIRE-ALL1-2011-01882

PATIENT
  Sex: Female
  Weight: 28.118 kg

DRUGS (7)
  1. INTUNIV [Suspect]
     Indication: AUTISM
     Dosage: 1 MG, 1X/DAY:QD
     Route: 048
     Dates: start: 20110401, end: 20110401
  2. ADVAIR DISKUS 100/50 [Concomitant]
     Indication: ASTHMA
     Dosage: UNK MG, 1X/DAY:QD
     Route: 055
  3. ABILIFY [Concomitant]
     Indication: AUTISM
     Dosage: 5 MG, 1X/DAY:QD(AS TREATMENT PATIENT BEGAN TO TAKE DOSE EARLIER IN DAY)
     Route: 048
     Dates: start: 20110401
  4. VYVANSE [Suspect]
     Indication: AUTISM
     Dosage: 70 MG, 1X/DAY:QD
     Route: 048
     Dates: start: 20080101
  5. INTUNIV [Suspect]
     Dosage: 2 MG, 1X/DAY:QD
     Route: 048
     Dates: start: 20110401
  6. MIRALAX                            /00754501/ [Concomitant]
     Indication: CONSTIPATION
     Dosage: UNK UNK, 1X/DAY:QD
     Route: 048
  7. ALBUTEROL [Concomitant]
     Indication: ASTHMA
     Dosage: UNK, 1X/DAY:QD
     Route: 055

REACTIONS (2)
  - OFF LABEL USE [None]
  - ABNORMAL LOSS OF WEIGHT [None]
